FAERS Safety Report 14045985 (Version 1)
Quarter: 2017Q4

REPORT INFORMATION
  Report Type: Spontaneous
  Country: US (occurrence: US)
  Receive Date: 20171005
  Receipt Date: 20171005
  Transmission Date: 20180321
  Serious: Yes (Death, Other)
  Sender: FDA-Public Use
  Company Number: US-INDIVIOR LIMITED-INDV-096262-2016

PATIENT
  Age: 58 Year
  Sex: Female

DRUGS (2)
  1. FENTANYL. [Suspect]
     Active Substance: FENTANYL
     Indication: PRODUCT USED FOR UNKNOWN INDICATION
     Dosage: UNK
     Route: 065
  2. SUBOXONE [Suspect]
     Active Substance: BUPRENORPHINE HYDROCHLORIDE\NALOXONE HYDROCHLORIDE
     Indication: DRUG USE DISORDER
     Dosage: 8 MG, DAILY
     Route: 060
     Dates: start: 2014, end: 201610

REACTIONS (5)
  - Toxicity to various agents [Fatal]
  - Drug dependence [Recovered/Resolved]
  - Drug screen positive [Recovered/Resolved]
  - Overdose [Fatal]
  - Drug abuse [Recovered/Resolved]

NARRATIVE: CASE EVENT DATE: 201610
